FAERS Safety Report 5202402-2 (Version None)
Quarter: 2006Q4

REPORT INFORMATION
  Report Type: 
  Country: None (occurrence: None)
  Receive Date: 20061012
  Receipt Date: 20060813
  Transmission Date: 20070319
  Serious: No
  Sender: FDA-Public Use
  Company Number: 2006S1000155

PATIENT
  Sex: Female
  Weight: 120 kg

DRUGS (4)
  1. CUBICIN [Suspect]
     Indication: ENTEROCOCCAL INFECTION
     Dosage: 725 MG;Q24H;IV
     Route: 042
  2. CUBICIN [Suspect]
     Indication: SEPSIS
     Dosage: 725 MG;Q24H;IV
     Route: 042
  3. CUBICIN [Suspect]
     Indication: STAPHYLOCOCCAL INFECTION
     Dosage: 725 MG;Q24H;IV
     Route: 042
  4. VANCOMYCIN [Concomitant]

REACTIONS (1)
  - THROMBOCYTOPENIA [None]
